FAERS Safety Report 17035724 (Version 1)
Quarter: 2019Q4

REPORT INFORMATION
  Report Type: Spontaneous
  Country: GB (occurrence: GB)
  Receive Date: 20191115
  Receipt Date: 20191115
  Transmission Date: 20200122
  Serious: Yes (Other)
  Sender: FDA-Public Use
  Company Number: GB-TEVA-2019-GB-1137938

PATIENT
  Age: 29 Year
  Sex: Female
  Weight: 59 kg

DRUGS (7)
  1. SERTRALINE HYDROCHLORIDE. [Concomitant]
     Active Substance: SERTRALINE HYDROCHLORIDE
  2. OMEPRAZOLE. [Concomitant]
     Active Substance: OMEPRAZOLE
  3. SALBUTAMOL [Concomitant]
     Active Substance: ALBUTEROL
  4. MONTELUKAST [Concomitant]
     Active Substance: MONTELUKAST SODIUM
  5. SERETIDE [Concomitant]
     Active Substance: FLUTICASONE PROPIONATE\SALMETEROL XINAFOATE
  6. DOXYCYCLINE HYCLATE. [Suspect]
     Active Substance: DOXYCYCLINE HYCLATE
     Indication: LOWER RESPIRATORY TRACT INFECTION
     Dosage: 100 MG 1 DAYS
     Route: 048
     Dates: start: 20180515, end: 20180520
  7. CERAZETTE [Concomitant]

REACTIONS (4)
  - Abdominal pain [Unknown]
  - Diarrhoea [Recovering/Resolving]
  - Hyperhidrosis [Unknown]
  - Dehydration [Unknown]

NARRATIVE: CASE EVENT DATE: 20180519
